FAERS Safety Report 5226204-6 (Version None)
Quarter: 2007Q1

REPORT INFORMATION
  Report Type: 
  Country: None (occurrence: None)
  Receive Date: 20070201
  Receipt Date: 20070124
  Transmission Date: 20070707
  Serious: Yes (Hospitalization)
  Sender: FDA-Public Use
  Company Number: FR-ROCHE-480060

PATIENT
  Age: 53 Year
  Sex: Male

DRUGS (64)
  1. ZENAPAX [Suspect]
     Dosage: 2 MG/KG DOSE ACCORDING TO PROTOCOL.
     Route: 065
     Dates: start: 20051207, end: 20051207
  2. ZENAPAX [Suspect]
     Dosage: 1 MG/KG DOSE ACCORDING TO PROTOCOL.
     Route: 065
     Dates: start: 20051214, end: 20051214
  3. MYCOPHENOLATE MOFETIL [Suspect]
     Route: 042
     Dates: start: 20051207, end: 20051207
  4. MYCOPHENOLATE MOFETIL [Suspect]
     Dosage: RETURN TOWARDS PER PROTOCOL DOSE.
     Route: 042
     Dates: start: 20051208, end: 20051212
  5. MYCOPHENOLATE MOFETIL [Suspect]
     Route: 042
     Dates: start: 20060129, end: 20060129
  6. MYCOPHENOLATE MOFETIL [Suspect]
     Route: 042
     Dates: start: 20060130, end: 20060202
  7. MYCOPHENOLATE MOFETIL [Suspect]
     Dosage: RETURN TOWARDS PER PROTOCOL DOSE.
     Route: 048
     Dates: start: 20051213, end: 20051213
  8. MYCOPHENOLATE MOFETIL [Suspect]
     Dosage: RETURN TOWARDS PER PROTOCOL DOSE.
     Route: 048
     Dates: start: 20051214, end: 20060128
  9. MYCOPHENOLATE MOFETIL [Suspect]
     Route: 048
     Dates: start: 20060203, end: 20060206
  10. MYCOPHENOLATE MOFETIL [Suspect]
     Dosage: RETURN TOWARDS PER PROTOCOL DOSE.
     Route: 048
     Dates: start: 20060207, end: 20060207
  11. MYCOPHENOLATE MOFETIL [Suspect]
     Route: 048
     Dates: start: 20060208, end: 20060314
  12. MYCOPHENOLATE MOFETIL [Suspect]
     Route: 048
     Dates: start: 20060315, end: 20060423
  13. MYCOPHENOLATE MOFETIL [Suspect]
     Route: 048
     Dates: start: 20060424, end: 20061128
  14. MYCOPHENOLATE MOFETIL [Suspect]
     Route: 048
     Dates: start: 20061129, end: 20061212
  15. TACROLIMUS [Suspect]
     Route: 048
     Dates: start: 20051212, end: 20051214
  16. TACROLIMUS [Suspect]
     Dosage: ADJUSTMENT TO REACH PREDEFINED TARGET LEVELS. DRUG INTERRUPTION ON 24/01/06.
     Route: 048
     Dates: start: 20051215, end: 20060123
  17. TACROLIMUS [Suspect]
     Dosage: ADJUSTMENT TO REACH PREDEFINED TARGET LEVELS.
     Route: 048
     Dates: start: 20060129, end: 20061212
  18. METHYLPREDNISOLONE 16MG TAB [Suspect]
     Route: 065
     Dates: start: 20051207, end: 20051208
  19. METHYLPREDNISOLONE 16MG TAB [Suspect]
     Dosage: TAPER ACCORDING TO LOCAL PROTOCOL.
     Route: 065
     Dates: start: 20051209, end: 20051212
  20. METHYLPREDNISOLONE 16MG TAB [Suspect]
     Dosage: TAPER ACCORDING TO LOCAL PROTOCOL.
     Route: 065
     Dates: start: 20051214, end: 20051215
  21. METHYLPREDNISOLONE 16MG TAB [Suspect]
     Dosage: TAPER ACCORDING TO LOCAL PROTOCOL.
     Route: 065
     Dates: start: 20051217, end: 20051218
  22. PREDNISONE [Suspect]
     Route: 065
     Dates: start: 20051216, end: 20051216
  23. PREDNISONE [Suspect]
     Dosage: TAPER ACCORDING TO LOCAL PROTOCOL
     Route: 065
     Dates: start: 20051219, end: 20060725
  24. ZOVIRAX [Concomitant]
     Dates: start: 20051207, end: 20060208
  25. ZELITREX [Concomitant]
     Dates: start: 20051213, end: 20051224
  26. HEPARIN [Concomitant]
     Indication: THROMBOSIS PROPHYLAXIS
     Dates: start: 20051208, end: 20051223
  27. FRAXIPARINE [Concomitant]
     Indication: THROMBOSIS PROPHYLAXIS
     Dates: start: 20051224, end: 20060123
  28. INIPOMP [Concomitant]
     Indication: PROPHYLAXIS
     Dates: start: 20051207
  29. BURINEX [Concomitant]
     Dates: start: 20051207, end: 20051221
  30. PIPERILLINE [Concomitant]
     Dates: start: 20051207, end: 20051210
  31. PERFALGAN [Concomitant]
     Indication: ABDOMINAL PAIN
     Dates: start: 20051216, end: 20060214
  32. MORPHINE [Concomitant]
     Indication: ABDOMINAL PAIN
     Dates: start: 20051210, end: 20051221
  33. TAZOCILLINE [Concomitant]
     Indication: STAPHYLOCOCCAL SEPSIS
     Dates: start: 20051217, end: 20051221
  34. ACTRAPID [Concomitant]
     Dates: start: 20051208, end: 20051218
  35. NICARDIPINE HCL [Concomitant]
     Indication: PROPHYLAXIS
     Dates: start: 20051208, end: 20060226
  36. AMLOR [Concomitant]
     Indication: PROPHYLAXIS
     Dates: start: 20051212, end: 20060522
  37. MAGNE B6 [Concomitant]
     Dosage: INDICATION REPORTED AS 'DEFICIENCY'
     Dates: start: 20060117, end: 20060123
  38. COAPROVEL [Concomitant]
     Indication: PROPHYLAXIS
     Dates: start: 20050418, end: 20050426
  39. TARGOCID [Concomitant]
     Indication: CHOLESTASIS
     Dosage: STOPPED ON 26 DEC 2005, RESTARTED ON 11 JAN 2006 FOR E.COLI URINARY INFECTION.
     Dates: start: 20051220, end: 20060220
  40. LASIX [Concomitant]
     Indication: PROPHYLAXIS
     Dates: start: 20051213, end: 20051213
  41. KAYEXALATE [Concomitant]
     Dates: start: 20060103, end: 20060103
  42. ATARAX [Concomitant]
     Indication: ANXIETY
     Dates: start: 20051222, end: 20060227
  43. DOLIPRANE [Concomitant]
     Indication: HEADACHE
     Dates: start: 20060105, end: 20060108
  44. SPASFON [Concomitant]
     Indication: ABDOMINAL PAIN
     Dates: start: 20060109, end: 20060109
  45. APROVEL [Concomitant]
     Dates: start: 20060523, end: 20060725
  46. BACTRIM [Concomitant]
     Indication: STENOTROPHOMONAS INFECTION
     Dates: start: 20060125, end: 20060211
  47. CLAVENTIN [Concomitant]
     Indication: STENOTROPHOMONAS INFECTION
     Dates: start: 20060125, end: 20060207
  48. FLAGYL [Concomitant]
     Indication: STENOTROPHOMONAS INFECTION
     Dates: start: 20060125, end: 20060205
  49. LOVENOX [Concomitant]
     Indication: THROMBOSIS PROPHYLAXIS
     Dates: start: 20060129
  50. ASPEGIC 1000 [Concomitant]
     Indication: THROMBOSIS PROPHYLAXIS
     Dates: start: 20060308, end: 20060724
  51. ASPIRIN [Concomitant]
     Indication: THROMBOSIS PROPHYLAXIS
     Dates: start: 20060418, end: 20060422
  52. HYDROXYZINE [Concomitant]
     Indication: ANXIETY DISORDER
     Dates: start: 20051222, end: 20060227
  53. CIPROFLOXACIN [Concomitant]
     Indication: ESCHERICHIA URINARY TRACT INFECTION
     Dates: start: 20060109, end: 20060116
  54. TIENAM [Concomitant]
     Indication: ESCHERICHIA URINARY TRACT INFECTION
     Dates: start: 20060111, end: 20060124
  55. ACUPAN [Concomitant]
     Indication: ANXIETY DISORDER
     Dates: start: 20060123, end: 20060123
  56. RIVOTRIL [Concomitant]
     Indication: ANXIETY
     Dates: start: 20060124, end: 20060225
  57. TRILEPTAL [Concomitant]
     Indication: ANXIETY DISORDER
     Dates: start: 20060131, end: 20060315
  58. DISCOTRINE [Concomitant]
     Indication: ANXIETY DISORDER
     Dates: start: 20060206, end: 20060207
  59. HYPNOVEL [Concomitant]
     Indication: ANXIETY DISORDER
     Dates: start: 20060206, end: 20060207
  60. TRANXENE [Concomitant]
     Indication: ANXIETY DISORDER
     Dates: start: 20060206, end: 20060207
  61. SERESTA [Concomitant]
     Indication: DEPRESSION
     Dates: start: 20060210
  62. ATHYMIL [Concomitant]
     Indication: DEPRESSION
     Dates: start: 20060210, end: 20060321
  63. BURINEX [Concomitant]
     Dates: start: 20061117, end: 20061117
  64. PREDNISOLONE [Suspect]
     Route: 065
     Dates: start: 20051213, end: 20051213

REACTIONS (1)
  - ESCHERICHIA URINARY TRACT INFECTION [None]
